FAERS Safety Report 10056168 (Version 1)
Quarter: 2014Q2

REPORT INFORMATION
  Report Type: Spontaneous
  Country: US (occurrence: None)
  Receive Date: 20140401
  Receipt Date: 20140401
  Transmission Date: 20141212
  Serious: Yes (Life-Threatening)
  Sender: FDA-Public Use
  Company Number: FK201401011

PATIENT
  Age: 56 Year
  Sex: Male
  Weight: 101 kg

DRUGS (2)
  1. PROTAMINE SULFATE [Suspect]
     Indication: HEPARIN NEUTRALISATION THERAPY
     Dosage: ONCE SLOWLY OVER 7-10
     Dates: start: 20140317, end: 20140317
  2. HEPARIN SODIUM INJECTION, USP (HEPARIN SODIUM) (HEPARIN SODIUM) [Suspect]
     Indication: PRODUCT USED FOR UNKNOWN INDICATION
     Dates: start: 20140317, end: 20140317

REACTIONS (2)
  - Ventricular fibrillation [None]
  - Haemorrhage [None]
